FAERS Safety Report 7738515-0 (Version None)
Quarter: 2011Q3

REPORT INFORMATION
  Report Type: 
  Country: None (occurrence: None)
  Receive Date: 20110908
  Receipt Date: 20110829
  Transmission Date: 20111222
  Serious: Yes (Hospitalization)
  Sender: FDA-Public Use
  Company Number: RO-BAXTER-2011BH027168

PATIENT
  Age: 72 Year
  Sex: Male

DRUGS (2)
  1. DIANEAL [Suspect]
     Indication: RENAL VESSEL DISORDER
     Route: 033
     Dates: start: 20101001
  2. DIANEAL [Suspect]
     Indication: HYPERTENSION
     Route: 033
     Dates: start: 20101001

REACTIONS (1)
  - CARDIOVASCULAR DISORDER [None]
